FAERS Safety Report 6385953-7 (Version None)
Quarter: 2009Q4

REPORT INFORMATION
  Report Type: 
  Country: None (occurrence: None)
  Receive Date: 20091002
  Receipt Date: 20090309
  Transmission Date: 20100525
  Serious: No
  Sender: FDA-Public Use
  Company Number: US-ASTRAZENECA-2009UW05960

PATIENT
  Age: 59 Year
  Sex: Female
  Weight: 56.7 kg

DRUGS (3)
  1. ARIMIDEX [Suspect]
     Route: 048
  2. BONIVA [Concomitant]
  3. THYROID MEDS [Concomitant]

REACTIONS (6)
  - ALOPECIA [None]
  - BONE PAIN [None]
  - HYPERPHAGIA [None]
  - MYALGIA [None]
  - ONYCHOLYSIS [None]
  - OSTEOPOROSIS [None]
